FAERS Safety Report 12461756 (Version 1)
Quarter: 2016Q2

REPORT INFORMATION
  Report Type: Spontaneous
  Country: US (occurrence: US)
  Receive Date: 20160613
  Receipt Date: 20160613
  Transmission Date: 20160815
  Serious: Yes (Death, Hospitalization, Other)
  Sender: FDA-Public Use
  Company Number: US-PFIZER INC-001-0073-980170

PATIENT
  Age: 46 Year
  Sex: Female

DRUGS (3)
  1. DILANTIN [Suspect]
     Active Substance: PHENYTOIN
     Dosage: UNK
     Route: 065
  2. INDERAL [Suspect]
     Active Substance: PROPRANOLOL HYDROCHLORIDE
     Dosage: UNK
     Route: 048
  3. TYLENOL [Suspect]
     Active Substance: ACETAMINOPHEN
     Indication: ILL-DEFINED DISORDER
     Dosage: APPROXIMATIVELY 100 CAPSULES OF 500 MG
     Route: 065

REACTIONS (4)
  - Intentional overdose [Fatal]
  - Hepatic encephalopathy [Fatal]
  - Cardiac arrest [Fatal]
  - Hepatotoxicity [Fatal]

NARRATIVE: CASE EVENT DATE: 19810912
